FAERS Safety Report 7944874-6 (Version None)
Quarter: 2011Q4

REPORT INFORMATION
  Report Type: 
  Country: None (occurrence: None)
  Receive Date: 20111129
  Receipt Date: 20110912
  Transmission Date: 20120403
  Serious: No
  Sender: FDA-Public Use
  Company Number: US-MYLANLABS-2011S1019067

PATIENT
  Age: 69 Year
  Sex: Female
  Weight: 61.24 kg

DRUGS (4)
  1. AMLODIPINE BESYLATE [Suspect]
     Indication: BLOOD PRESSURE INCREASED
     Route: 048
     Dates: start: 20110912
  2. VITAMIN TAB [Concomitant]
     Route: 048
  3. CRESTOR [Concomitant]
     Indication: BLOOD CHOLESTEROL
     Route: 048
  4. ZETIA [Concomitant]
     Route: 048

REACTIONS (4)
  - HEADACHE [None]
  - FEELING ABNORMAL [None]
  - DIZZINESS [None]
  - FLUSHING [None]
